FAERS Safety Report 9382248 (Version 1)
Quarter: 2013Q3

REPORT INFORMATION
  Report Type: Spontaneous
  Country: US (occurrence: US)
  Receive Date: 20130703
  Receipt Date: 20130703
  Transmission Date: 20140515
  Serious: No
  Sender: FDA-Public Use
  Company Number: US-UPSHER-SMITH LABORATORIES, INC.-12001826

PATIENT
  Age: 52 Year
  Sex: Female

DRUGS (4)
  1. DIVIGEL [Suspect]
     Indication: HOT FLUSH
     Dosage: 1 MG, QD
     Route: 061
     Dates: start: 201204
  2. PROZAC                             /00724401/ [Concomitant]
     Dosage: UNK
  3. COZAAR [Concomitant]
     Dosage: UNK
  4. TOPAMAX [Concomitant]
     Dosage: UNK

REACTIONS (2)
  - Nasal inflammation [Not Recovered/Not Resolved]
  - Drug ineffective [Not Recovered/Not Resolved]
